FAERS Safety Report 11821027 (Version 1)
Quarter: 2015Q4

REPORT INFORMATION
  Report Type: Spontaneous
  Country: US (occurrence: None)
  Receive Date: 20151209
  Receipt Date: 20151209
  Transmission Date: 20160305
  Serious: Yes (Other)
  Sender: FDA-Public Use
  Company Number: None

PATIENT
  Age: 51 Year
  Sex: Female
  Weight: 108.86 kg

DRUGS (9)
  1. LEVEMIR PENFILL [Concomitant]
     Active Substance: INSULIN DETEMIR
  2. VITAMIN D [Concomitant]
     Active Substance: CHOLECALCIFEROL
  3. DYAZIDE [Concomitant]
     Active Substance: HYDROCHLOROTHIAZIDE\TRIAMTERENE
  4. GARLIC. [Concomitant]
     Active Substance: GARLIC
  5. LANTUS SOLOSTAR [Suspect]
     Active Substance: INSULIN GLARGINE
     Indication: TYPE 2 DIABETES MELLITUS
     Dosage: 60 UNITS, INJECTED IN HIP/STOMACH AREA
  6. FISH OIL [Concomitant]
     Active Substance: FISH OIL
  7. MELOXICAM. [Concomitant]
     Active Substance: MELOXICAM
  8. ZYRTEC [Concomitant]
     Active Substance: CETIRIZINE HYDROCHLORIDE
  9. PSEUDOPHEDRINE [Concomitant]
     Active Substance: PSEUDOEPHEDRINE

REACTIONS (5)
  - Rash [None]
  - Spinal column stenosis [None]
  - Peripheral swelling [None]
  - Drug effect decreased [None]
  - No therapeutic response [None]

NARRATIVE: CASE EVENT DATE: 20150103
